FAERS Safety Report 5702209-3 (Version None)
Quarter: 2008Q2

REPORT INFORMATION
  Report Type: 
  Country: None (occurrence: None)
  Receive Date: 20080411
  Receipt Date: 20080111
  Transmission Date: 20081010
  Serious: No
  Sender: FDA-Public Use
  Company Number: US-ABBOTT-08P-163-0433825-00

PATIENT
  Sex: Male
  Weight: 98.064 kg

DRUGS (7)
  1. DEPAKOTE [Suspect]
     Indication: BIPOLAR DISORDER
     Route: 048
     Dates: start: 20070501, end: 20070501
  2. ENALAPRIL MALEATE [Concomitant]
     Indication: HYPERTENSION
     Route: 048
  3. NIFEDIPINE [Concomitant]
     Indication: HYPERTENSION
     Route: 048
  4. ATORVASTATIN CALCIUM [Concomitant]
     Indication: BLOOD CHOLESTEROL INCREASED
     Route: 048
  5. NAPROXEN [Concomitant]
     Indication: HEADACHE
     Route: 048
  6. IBUPROFEN [Concomitant]
     Indication: HEADACHE
     Route: 048
  7. ACETYLSALICYLIC ACID SRT [Concomitant]
     Indication: HEADACHE
     Route: 048

REACTIONS (5)
  - DYSPHAGIA [None]
  - HEADACHE [None]
  - HEMIPARESIS [None]
  - HYPOAESTHESIA [None]
  - PARAESTHESIA [None]
